FAERS Safety Report 25408040 (Version 2)
Quarter: 2025Q4

REPORT INFORMATION
  Report Type: Spontaneous
  Country: EU (occurrence: EU)
  Receive Date: 20250606
  Receipt Date: 20251230
  Transmission Date: 20260117
  Serious: Yes (Life-Threatening, Hospitalization)
  Sender: MYLAN
  Company Number: None

PATIENT
  Age: 33 Year
  Sex: Male
  Weight: 72.4 kg

DRUGS (20)
  1. TRAMADOL [Suspect]
     Active Substance: TRAMADOL
     Indication: Product used for unknown indication
     Dosage: 900 MILLIGRAM, TOTAL
     Route: 061
     Dates: start: 20250509, end: 20250509
  2. TRAMADOL [Suspect]
     Active Substance: TRAMADOL
     Dosage: 900 MILLIGRAM, TOTAL
     Route: 048
     Dates: start: 20250509, end: 20250509
  3. TRAMADOL [Suspect]
     Active Substance: TRAMADOL
     Dosage: 900 MILLIGRAM, TOTAL
     Route: 048
     Dates: start: 20250509, end: 20250509
  4. TRAMADOL [Suspect]
     Active Substance: TRAMADOL
     Dosage: 900 MILLIGRAM, TOTAL
     Route: 061
     Dates: start: 20250509, end: 20250509
  5. LAMALINE (ACETAMINOPHEN\CAFFEINE\OPIUM) [Suspect]
     Active Substance: ACETAMINOPHEN\CAFFEINE\OPIUM
     Indication: Product used for unknown indication
     Dosage: 34 DOSAGE FORM, TOTAL
     Route: 061
     Dates: start: 20250509, end: 20250509
  6. LAMALINE (ACETAMINOPHEN\CAFFEINE\OPIUM) [Suspect]
     Active Substance: ACETAMINOPHEN\CAFFEINE\OPIUM
     Dosage: 34 DOSAGE FORM, TOTAL
     Route: 048
     Dates: start: 20250509, end: 20250509
  7. LAMALINE (ACETAMINOPHEN\CAFFEINE\OPIUM) [Suspect]
     Active Substance: ACETAMINOPHEN\CAFFEINE\OPIUM
     Dosage: 34 DOSAGE FORM, TOTAL
     Route: 048
     Dates: start: 20250509, end: 20250509
  8. LAMALINE (ACETAMINOPHEN\CAFFEINE\OPIUM) [Suspect]
     Active Substance: ACETAMINOPHEN\CAFFEINE\OPIUM
     Dosage: 34 DOSAGE FORM, TOTAL
     Route: 061
     Dates: start: 20250509, end: 20250509
  9. ACETAMINOPHEN [Suspect]
     Active Substance: ACETAMINOPHEN
     Indication: Product used for unknown indication
     Dosage: 12 GRAM, TOTAL
     Route: 061
     Dates: start: 20250509, end: 20250509
  10. ACETAMINOPHEN [Suspect]
     Active Substance: ACETAMINOPHEN
     Dosage: 12 GRAM, TOTAL
     Route: 048
     Dates: start: 20250509, end: 20250509
  11. ACETAMINOPHEN [Suspect]
     Active Substance: ACETAMINOPHEN
     Dosage: 12 GRAM, TOTAL
     Route: 048
     Dates: start: 20250509, end: 20250509
  12. ACETAMINOPHEN [Suspect]
     Active Substance: ACETAMINOPHEN
     Dosage: 12 GRAM, TOTAL
     Route: 061
     Dates: start: 20250509, end: 20250509
  13. IBUPROFEN [Suspect]
     Active Substance: IBUPROFEN
     Indication: Product used for unknown indication
     Dosage: 5 DOSAGE FORM, TOTAL
     Route: 061
     Dates: start: 20250509, end: 20250509
  14. IBUPROFEN [Suspect]
     Active Substance: IBUPROFEN
     Dosage: 5 DOSAGE FORM, TOTAL
     Route: 048
     Dates: start: 20250509, end: 20250509
  15. IBUPROFEN [Suspect]
     Active Substance: IBUPROFEN
     Dosage: 5 DOSAGE FORM, TOTAL
     Route: 048
     Dates: start: 20250509, end: 20250509
  16. IBUPROFEN [Suspect]
     Active Substance: IBUPROFEN
     Dosage: 5 DOSAGE FORM, TOTAL
     Route: 061
     Dates: start: 20250509, end: 20250509
  17. DESLORATADINE [Suspect]
     Active Substance: DESLORATADINE
     Indication: Product used for unknown indication
     Dosage: 15 DOSAGE FORM, TOTAL
     Route: 061
     Dates: start: 20250509, end: 20250509
  18. DESLORATADINE [Suspect]
     Active Substance: DESLORATADINE
     Dosage: 15 DOSAGE FORM, TOTAL
     Route: 048
     Dates: start: 20250509, end: 20250509
  19. DESLORATADINE [Suspect]
     Active Substance: DESLORATADINE
     Dosage: 15 DOSAGE FORM, TOTAL
     Route: 048
     Dates: start: 20250509, end: 20250509
  20. DESLORATADINE [Suspect]
     Active Substance: DESLORATADINE
     Dosage: 15 DOSAGE FORM, TOTAL
     Route: 061
     Dates: start: 20250509, end: 20250509

REACTIONS (4)
  - Poisoning deliberate [Recovered/Resolved]
  - Renal tubular necrosis [Recovered/Resolved]
  - Acute hepatic failure [Recovered/Resolved]
  - Hepatitis acute [Unknown]

NARRATIVE: CASE EVENT DATE: 20250509
